FAERS Safety Report 24993635 (Version 1)
Quarter: 2025Q1

REPORT INFORMATION
  Report Type: Spontaneous
  Country: FR (occurrence: FR)
  Receive Date: 20250221
  Receipt Date: 20250221
  Transmission Date: 20250409
  Serious: Yes (Hospitalization)
  Sender: AUROBINDO
  Company Number: FR-AFSSAPS-CN2025000131

PATIENT
  Age: 19 Year
  Sex: Female
  Weight: 100 kg

DRUGS (6)
  1. ACETAMINOPHEN [Suspect]
     Active Substance: ACETAMINOPHEN
     Indication: Product used for unknown indication
     Route: 048
     Dates: start: 20250201, end: 20250201
  2. PRAZOSIN HYDROCHLORIDE [Concomitant]
     Active Substance: PRAZOSIN HYDROCHLORIDE
     Indication: Nightmare
     Dosage: 5 MILLIGRAM, ONCE A DAY [2 COMPRIM?S LE SOIR]
     Route: 048
     Dates: start: 20240116
  3. CLOZAPINE [Concomitant]
     Active Substance: CLOZAPINE
     Indication: Product used for unknown indication
     Dosage: 200 MILLIGRAM, ONCE A DAY [1 COMPRIM? MATIN ET SOIR]
     Route: 048
     Dates: start: 20250106
  4. DIAZEPAM [Concomitant]
     Active Substance: DIAZEPAM
     Indication: Anxiety
     Dosage: 20 MILLIGRAM, ONCE A DAY [2 COMPRIM?S PAR JOUR]
     Route: 048
     Dates: start: 20240916
  5. LEVOMEPROMAZINE [Concomitant]
     Active Substance: LEVOMEPROMAZINE
     Indication: Depression
     Dosage: 25 MILLIGRAM, ONCE A DAY [1 COMPRIM? PAR JOUR]
     Route: 048
     Dates: start: 20250120
  6. PAROXETINE HYDROCHLORIDE [Concomitant]
     Active Substance: PAROXETINE HYDROCHLORIDE
     Indication: Depression
     Dosage: 40 MILLIGRAM, ONCE A DAY [2 COMPRIM?S LE MATIN]
     Route: 048
     Dates: start: 20240606

REACTIONS (4)
  - Toxicity to various agents [Recovered/Resolved]
  - Abdominal pain [Recovered/Resolved]
  - Blood alkaline phosphatase increased [Not Recovered/Not Resolved]
  - Gamma-glutamyltransferase increased [Not Recovered/Not Resolved]

NARRATIVE: CASE EVENT DATE: 20250201
